FAERS Safety Report 17498292 (Version 2)
Quarter: 2020Q1

REPORT INFORMATION
  Report Type: Spontaneous
  Country: US (occurrence: US)
  Receive Date: 20200304
  Receipt Date: 20200305
  Transmission Date: 20200409
  Serious: No
  Sender: FDA-Public Use
  Company Number: US-PFIZER INC-2020096128

PATIENT
  Age: 52 Year
  Sex: Male
  Weight: 92.99 kg

DRUGS (1)
  1. AMLODIPINE BESILATE [Suspect]
     Active Substance: AMLODIPINE BESYLATE
     Indication: HYPERTENSION
     Dosage: UNK, 1X/DAY
     Dates: end: 2020

REACTIONS (1)
  - Blister [Not Recovered/Not Resolved]
